FAERS Safety Report 8344977-0 (Version None)
Quarter: 2012Q2

REPORT INFORMATION
  Report Type: 
  Country: None (occurrence: None)
  Receive Date: 20120508
  Receipt Date: 20120424
  Transmission Date: 20120825
  Serious: Yes (Hospitalization)
  Sender: FDA-Public Use
  Company Number: JP-ELI_LILLY_AND_COMPANY-JP201204008884

PATIENT
  Age: 74 Year
  Sex: Female

DRUGS (3)
  1. FLUVOXAMINE MALEATE [Concomitant]
     Dosage: UNK
     Route: 048
     Dates: start: 20111019
  2. FLUVOXAMINE MALEATE [Concomitant]
     Indication: DEPRESSION
     Dosage: UNK
     Route: 048
     Dates: end: 20111018
  3. CYMBALTA [Suspect]
     Indication: DEPRESSION
     Dosage: 20 MG, QD
     Route: 048
     Dates: start: 20111019, end: 20111025

REACTIONS (1)
  - ASTHMA [None]
